FAERS Safety Report 8322749-0 (Version None)
Quarter: 2012Q2

REPORT INFORMATION
  Report Type: 
  Country: None (occurrence: None)
  Receive Date: 20120430
  Receipt Date: 20110407
  Transmission Date: 20120825
  Serious: Yes (Other)
  Sender: FDA-Public Use
  Company Number: US-TEVA-2009005165

PATIENT
  Sex: Female
  Weight: 70.37 kg

DRUGS (6)
  1. PROZAC [Concomitant]
     Indication: DEPRESSION
     Dates: start: 20080101
  2. ASPIRIN [Concomitant]
     Indication: CEREBROVASCULAR ACCIDENT
     Dates: start: 20080101
  3. TOPROL-XL [Concomitant]
     Dates: start: 20080101
  4. PROVIGIL [Suspect]
     Dosage: 200 MILLIGRAM;
     Route: 048
     Dates: start: 20090101
  5. XANAX [Interacting]
     Dosage: .5 MILLIGRAM;
     Dates: end: 20090601
  6. WELLBUTRIN [Concomitant]
     Indication: DEPRESSION
     Dates: start: 20080101

REACTIONS (3)
  - DRUG INTERACTION [None]
  - HALLUCINATION [None]
  - ABNORMAL DREAMS [None]
